FAERS Safety Report 9690473 (Version 2)
Quarter: 2014Q1

REPORT INFORMATION
  Report Type: Report from Study
  Country: ES (occurrence: ES)
  Receive Date: 20131115
  Receipt Date: 20140218
  Transmission Date: 20141002
  Serious: Yes (Life-Threatening, Hospitalization)
  Sender: FDA-Public Use
  Company Number: ES-TEVA-444325USA

PATIENT
  Age: 55 Year
  Sex: Female

DRUGS (4)
  1. BENDAMUSTINE [Suspect]
     Indication: DIFFUSE LARGE B-CELL LYMPHOMA
     Route: 042
     Dates: start: 20121101, end: 20121102
  2. ARA-C [Concomitant]
  3. VP-16 [Concomitant]
  4. MELPHALAN [Concomitant]

REACTIONS (5)
  - Pleural effusion [Recovered/Resolved]
  - Respiratory failure [Recovered/Resolved]
  - Productive cough [Recovered/Resolved]
  - Fungal infection [Recovered/Resolved]
  - Pyrexia [Recovered/Resolved]
